FAERS Safety Report 7583340-7 (Version None)
Quarter: 2011Q2

REPORT INFORMATION
  Report Type: 
  Country: None (occurrence: None)
  Receive Date: 20110630
  Receipt Date: 20110620
  Transmission Date: 20111010
  Serious: Yes (Hospitalization, Other)
  Sender: FDA-Public Use
  Company Number: DE-ELI_LILLY_AND_COMPANY-DE201106005908

PATIENT
  Age: 72 Year
  Sex: Female

DRUGS (3)
  1. VITAMIN D [Concomitant]
  2. CALCIUM CARBONATE [Concomitant]
  3. FORTEO [Suspect]
     Indication: OSTEOPOROSIS
     Dosage: UNK, QD
     Route: 058
     Dates: start: 20110120

REACTIONS (2)
  - BILIARY COLIC [None]
  - PANCREATITIS [None]
